FAERS Safety Report 18044624 (Version 1)
Quarter: 2020Q3

REPORT INFORMATION
  Report Type: Report from Study
  Country: DE (occurrence: DE)
  Receive Date: 20200720
  Receipt Date: 20200720
  Transmission Date: 20201103
  Serious: Yes (Death, Hospitalization, Other)
  Sender: FDA-Public Use
  Company Number: DE-JNJFOC-20191047092

PATIENT

DRUGS (23)
  1. CAELYX [Suspect]
     Active Substance: DOXORUBICIN HYDROCHLORIDE
     Indication: PLASMA CELL MYELOMA
     Dosage: ON DAY 2, 3
     Route: 042
  2. CAELYX [Suspect]
     Active Substance: DOXORUBICIN HYDROCHLORIDE
     Dosage: DAY 2, 3
     Route: 042
  3. POMALIDOMIDE [Suspect]
     Active Substance: POMALIDOMIDE
     Dosage: ON DAY 1?14
     Route: 048
  4. DOXORUBICIN [Suspect]
     Active Substance: DOXORUBICIN
     Dosage: DAY 1?4,  NON?LIPOSOMAL
     Route: 042
  5. POMALIDOMIDE [Suspect]
     Active Substance: POMALIDOMIDE
     Indication: PLASMA CELL MYELOMA
     Dosage: DAY 1?14
     Route: 048
  6. ACETAMINOPHEN. [Concomitant]
     Active Substance: ACETAMINOPHEN
  7. RANITIDINE. [Concomitant]
     Active Substance: RANITIDINE
  8. ENOXAPARIN [Concomitant]
     Active Substance: ENOXAPARIN
     Indication: THROMBOSIS PROPHYLAXIS
  9. CAELYX [Suspect]
     Active Substance: DOXORUBICIN HYDROCHLORIDE
     Dosage: DAY 2,3
     Route: 042
  10. DEXAMETASON [Suspect]
     Active Substance: DEXAMETHASONE
     Indication: PLASMA CELL MYELOMA
     Dosage: DAY 1, 2, 4, 5, 8, 9, 11, 12
     Route: 048
  11. DOXORUBICIN [Suspect]
     Active Substance: DOXORUBICIN
     Dosage: DAY 1?4,  NON?LIPOSOMAL
     Route: 042
  12. DOXORUBICIN [Suspect]
     Active Substance: DOXORUBICIN
     Dosage: DAY 1?4,  NON?LIPOSOMAL
     Route: 042
  13. CLEMASTINE [Concomitant]
     Active Substance: CLEMASTINE
  14. COTRIMOXAZOLE [Concomitant]
     Active Substance: SULFAMETHOXAZOLE\TRIMETHOPRIM
  15. VELCADE [Suspect]
     Active Substance: BORTEZOMIB
     Dosage: ON DAY 1, 4, 8, 11
     Route: 058
  16. ACYCLOVIR                          /00587301/ [Concomitant]
     Active Substance: ACYCLOVIR
  17. ASPRIN [Concomitant]
     Active Substance: ASPIRIN
     Indication: THROMBOSIS PROPHYLAXIS
  18. VELCADE [Suspect]
     Active Substance: BORTEZOMIB
     Dosage: ON DAY 1, 4
     Route: 058
  19. DARZALEX [Suspect]
     Active Substance: DARATUMUMAB
     Indication: PLASMA CELL MYELOMA
     Dosage: ON DAY 0, 5
     Route: 042
  20. POMALIDOMIDE [Suspect]
     Active Substance: POMALIDOMIDE
     Route: 048
  21. DOXORUBICIN [Suspect]
     Active Substance: DOXORUBICIN
     Indication: PLASMA CELL MYELOMA
     Dosage: DAY 1?4, NON?LIPOSOMAL
     Route: 042
  22. VELCADE [Suspect]
     Active Substance: BORTEZOMIB
     Indication: PLASMA CELL MYELOMA
     Dosage: DAY 1, 4, 8, 11
     Route: 058
  23. PANTOPRAZOLE [Concomitant]
     Active Substance: PANTOPRAZOLE

REACTIONS (21)
  - Anaemia [Unknown]
  - Neutropenia [Unknown]
  - Diarrhoea [Unknown]
  - Cardiac failure [Unknown]
  - Polyneuropathy [Unknown]
  - Atrial fibrillation [Unknown]
  - Pneumonia respiratory syncytial viral [Fatal]
  - Bronchospasm [Unknown]
  - Enterocolitis infectious [Unknown]
  - Device related infection [Unknown]
  - Hepatic enzyme increased [Unknown]
  - Embolism [Unknown]
  - Pneumonia [Unknown]
  - Influenza like illness [Unknown]
  - Sepsis [Fatal]
  - Thrombocytopenia [Unknown]
  - Febrile neutropenia [Unknown]
  - Lymph gland infection [Unknown]
  - Cerebrovascular accident [Unknown]
  - Leukopenia [Unknown]
  - Agitation [Unknown]
